FAERS Safety Report 9524860 (Version 1)
Quarter: 2013Q3

REPORT INFORMATION
  Report Type: Report from Study
  Country: LB (occurrence: LB)
  Receive Date: 20130916
  Receipt Date: 20130916
  Transmission Date: 20140515
  Serious: Yes (Hospitalization)
  Sender: FDA-Public Use
  Company Number: LB-SANOFI-AVENTIS-2013SA089605

PATIENT
  Age: 53 Year
  Sex: Female

DRUGS (8)
  1. LANTUS SOLOSTAR [Suspect]
     Indication: DIABETES MELLITUS
     Dosage: DOSE:35 UNIT(S)
     Route: 058
     Dates: start: 2013
  2. SOLOSTAR [Concomitant]
     Indication: DEVICE THERAPY
     Dates: start: 2013
  3. GLUCOPHAGE [Concomitant]
     Indication: DIABETES MELLITUS
     Route: 048
  4. DIAMICRON [Concomitant]
     Indication: DIABETES MELLITUS
     Route: 048
  5. PRAXILENE [Concomitant]
     Route: 048
  6. LIPONORM [Concomitant]
     Route: 048
  7. GASTRIMUT [Concomitant]
     Route: 048
  8. ASPICOT [Concomitant]
     Route: 048

REACTIONS (4)
  - Ischaemic neuropathy [Recovered/Resolved with Sequelae]
  - Pain in extremity [Unknown]
  - Asthenia [Unknown]
  - Infection [Recovered/Resolved with Sequelae]
